FAERS Safety Report 6664045-3 (Version None)
Quarter: 2010Q2

REPORT INFORMATION
  Report Type: 
  Country: None (occurrence: None)
  Receive Date: 20100401
  Receipt Date: 20100326
  Transmission Date: 20101027
  Serious: Yes (Hospitalization)
  Sender: FDA-Public Use
  Company Number: A0852182A

PATIENT
  Sex: Female

DRUGS (4)
  1. LAMICTAL CD [Suspect]
     Indication: EPILEPSY
     Dosage: 600MG THREE TIMES PER DAY
     Route: 048
     Dates: start: 20080101
  2. LAMOTRIGINE [Suspect]
     Indication: EPILEPSY
     Route: 048
  3. VITAMIN C [Suspect]
     Indication: DRUG USE FOR UNKNOWN INDICATION
  4. NO CONCURRENT MEDICATION [Concomitant]

REACTIONS (9)
  - ACCIDENTAL OVERDOSE [None]
  - CONVULSION [None]
  - DIZZINESS [None]
  - DRUG INEFFECTIVE [None]
  - DRUG INTERACTION [None]
  - DRUG LEVEL DECREASED [None]
  - GAIT DISTURBANCE [None]
  - OVERDOSE [None]
  - PRODUCT SUBSTITUTION ISSUE [None]
